FAERS Safety Report 9988134 (Version 1)
Quarter: 2014Q1

REPORT INFORMATION
  Report Type: Spontaneous
  Country: FR (occurrence: FR)
  Receive Date: 20140308
  Receipt Date: 20140308
  Transmission Date: 20141002
  Serious: Yes (Hospitalization)
  Sender: FDA-Public Use
  Company Number: FR-ASTRAZENECA-2014SE14578

PATIENT
  Age: 3889 Day
  Sex: Female
  Weight: 24 kg

DRUGS (3)
  1. XYLOCAINE [Suspect]
     Indication: SEDATION
     Dosage: TEN INHALATIONS
     Route: 002
     Dates: start: 20140217, end: 20140217
  2. KALINOX [Suspect]
     Indication: SEDATION
     Dosage: 6 L/MINUTE
     Route: 055
     Dates: start: 20140217, end: 20140217
  3. MIDAZOLAM PANPHARMA [Suspect]
     Indication: SEDATION
     Route: 042
     Dates: start: 20140217, end: 20140217

REACTIONS (4)
  - Laryngospasm [Recovered/Resolved]
  - Cyanosis [Recovered/Resolved]
  - Oxygen saturation decreased [None]
  - Amnesia [None]
